FAERS Safety Report 9207403 (Version 1)
Quarter: 2013Q2

REPORT INFORMATION
  Report Type: Spontaneous
  Country: US (occurrence: None)
  Receive Date: 20130402
  Receipt Date: 20130402
  Transmission Date: 20140414
  Serious: Yes (Life-Threatening)
  Sender: FDA-Public Use
  Company Number: None

PATIENT
  Sex: Male
  Weight: 86.8 kg

DRUGS (1)
  1. LEVAQUIN 500?MG [Suspect]
     Indication: PNEUMONIA
     Route: 048
     Dates: start: 20130329, end: 20130330

REACTIONS (2)
  - Asthenia [None]
  - Atrial fibrillation [None]
